FAERS Safety Report 9000915 (Version 5)
Quarter: 2013Q1

REPORT INFORMATION
  Report Type: Spontaneous
  Country: AU (occurrence: AU)
  Receive Date: 20130107
  Receipt Date: 20130225
  Transmission Date: 20140127
  Serious: Yes (Other)
  Sender: FDA-Public Use
  Company Number: PHHY2013AU001285

PATIENT
  Sex: Female

DRUGS (2)
  1. ACLASTA [Suspect]
     Dosage: 5 MG, UNK
     Route: 042
     Dates: start: 20110303
  2. ACLASTA [Suspect]
     Dosage: 5 MG, UNK
     Route: 042
     Dates: start: 20120227

REACTIONS (16)
  - Spinal disorder [Unknown]
  - Hypoaesthesia [Not Recovered/Not Resolved]
  - Exostosis [Unknown]
  - Local swelling [Unknown]
  - Arthralgia [Unknown]
  - Joint swelling [Unknown]
  - Vitamin D decreased [Unknown]
  - Muscular weakness [Unknown]
  - Muscle spasms [Not Recovered/Not Resolved]
  - Tooth discolouration [Unknown]
  - Blood calcium increased [Unknown]
  - Feeling abnormal [Unknown]
  - Mineral deficiency [Unknown]
  - Bone density abnormal [Unknown]
  - Insomnia [Unknown]
  - Drug ineffective [Unknown]
